FAERS Safety Report 13071258 (Version 1)
Quarter: 2016Q4

REPORT INFORMATION
  Report Type: Spontaneous
  Country: DE (occurrence: DE)
  Receive Date: 20161229
  Receipt Date: 20161229
  Transmission Date: 20170207
  Serious: Yes (Other)
  Sender: FDA-Public Use
  Company Number: DE-SA-2016SA230459

PATIENT
  Age: 67 Year
  Sex: Female

DRUGS (11)
  1. METOPROLOL SUCCINATE. [Concomitant]
     Active Substance: METOPROLOL SUCCINATE
     Dosage: 1-0-1/2
     Route: 048
  2. LOSARTAN. [Concomitant]
     Active Substance: LOSARTAN
     Route: 048
  3. LOSARTAN. [Concomitant]
     Active Substance: LOSARTAN
     Route: 048
  4. CARMEN [Concomitant]
     Active Substance: LERCANIDIPINE
     Route: 048
  5. TOUJEO [Suspect]
     Active Substance: INSULIN GLARGINE
     Indication: INSULIN-REQUIRING TYPE 2 DIABETES MELLITUS
     Route: 058
     Dates: start: 201604, end: 201612
  6. SOLOSTAR [Concomitant]
     Active Substance: DEVICE
     Dates: start: 201604, end: 201612
  7. METFORMIN [Concomitant]
     Active Substance: METFORMIN HYDROCHLORIDE
     Route: 048
  8. KOMBOGLYZE [Concomitant]
     Active Substance: METFORMIN HYDROCHLORIDE\SAXAGLIPTIN
     Route: 048
  9. DOCITON [Concomitant]
     Active Substance: PROPRANOLOL HYDROCHLORIDE
     Route: 048
  10. TORASEMID [Concomitant]
     Active Substance: TORSEMIDE
     Route: 048
  11. URSOFALK [Concomitant]
     Active Substance: URSODIOL
     Route: 048

REACTIONS (8)
  - Glycosylated haemoglobin increased [Unknown]
  - Increased appetite [Unknown]
  - Blood glucose increased [Unknown]
  - Transaminases increased [Unknown]
  - Blood pressure increased [Unknown]
  - Hot flush [Unknown]
  - Diarrhoea [Unknown]
  - Weight increased [Unknown]

NARRATIVE: CASE EVENT DATE: 20160908
